FAERS Safety Report 19566626 (Version 1)
Quarter: 2021Q3

REPORT INFORMATION
  Report Type: Spontaneous
  Country: DE (occurrence: DE)
  Receive Date: 20210716
  Receipt Date: 20210716
  Transmission Date: 20211014
  Serious: Yes (Death)
  Sender: FDA-Public Use
  Company Number: DE-009507513-2107DEU005134

PATIENT
  Age: 73 Year
  Sex: Male

DRUGS (2)
  1. PEMBROLIZUMAB. [Suspect]
     Active Substance: PEMBROLIZUMAB
     Indication: HEPATOCELLULAR CARCINOMA
     Dosage: DOSE AND FREQUENCY NOT PROVIDED
     Route: 048
     Dates: start: 201902
  2. LENVATINIB MESYLATE [Suspect]
     Active Substance: LENVATINIB MESYLATE
     Indication: HEPATOCELLULAR CARCINOMA
     Dosage: 1 CAPSULE, QD
     Route: 048
     Dates: start: 201810

REACTIONS (7)
  - Pneumonia aspiration [Fatal]
  - Apathy [Unknown]
  - Fatigue [Unknown]
  - Decreased appetite [Unknown]
  - General physical health deterioration [Unknown]
  - Palmar-plantar erythrodysaesthesia syndrome [Unknown]
  - Blood pressure fluctuation [Unknown]

NARRATIVE: CASE EVENT DATE: 2019
